FAERS Safety Report 16168088 (Version 1)
Quarter: 2019Q2

REPORT INFORMATION
  Report Type: Spontaneous
  Country: US (occurrence: US)
  Receive Date: 20190408
  Receipt Date: 20190408
  Transmission Date: 20190711
  Serious: No
  Sender: FDA-Public Use
  Company Number: US-PFIZER INC-2015462785

PATIENT
  Age: 67 Year
  Sex: Female
  Weight: 92 kg

DRUGS (14)
  1. LYRICA [Suspect]
     Active Substance: PREGABALIN
     Indication: FIBROMYALGIA
  2. LOVASTATIN. [Concomitant]
     Active Substance: LOVASTATIN
     Dosage: 20 MG, 1X/DAY (1 TABLET WITH A MEAL)
     Route: 048
  3. BACLOFEN. [Concomitant]
     Active Substance: BACLOFEN
     Indication: MUSCLE SPASMS
     Dosage: 10 MG, 2X/DAY (1/2- 1TABLET WITH FOOD OR MILK)
     Route: 048
     Dates: start: 20140814
  4. LYRICA [Suspect]
     Active Substance: PREGABALIN
     Indication: NEUROPATHY PERIPHERAL
  5. TRAMADOL HCL [Concomitant]
     Active Substance: TRAMADOL HYDROCHLORIDE
     Dosage: 50 MG, AS NEEDED
     Route: 048
  6. LYRICA [Suspect]
     Active Substance: PREGABALIN
     Indication: PARAESTHESIA
     Dosage: 150 MG, 3X/DAY
     Route: 048
     Dates: start: 20150330
  7. AMPYRA [Concomitant]
     Active Substance: DALFAMPRIDINE
     Indication: GAIT DISTURBANCE
     Dosage: 10 MG, 2X/DAY
     Route: 048
     Dates: start: 20140306
  8. CRANBERRY. [Concomitant]
     Active Substance: CRANBERRY
     Dosage: UNK
  9. LYRICA [Suspect]
     Active Substance: PREGABALIN
     Indication: MULTIPLE SCLEROSIS
  10. TYSABRI [Concomitant]
     Active Substance: NATALIZUMAB
     Indication: MULTIPLE SCLEROSIS
     Dosage: 15 ML, UNK (300 MG/15ML CONCENTRATE)
     Route: 042
  11. CALCIUM [Concomitant]
     Active Substance: CALCIUM
     Dosage: 600 MG, 2X/DAY (1 TABLET WITH MEALS)
     Route: 048
  12. HYDROCODONE- ACETAMINOPHEN [Concomitant]
     Dosage: UNK, AS NEEDED (HYDROCODONE 5- ACETAMINOPHEN 325MG)
     Route: 048
  13. NAPROXEN. [Concomitant]
     Active Substance: NAPROXEN
     Dosage: 500 MG, 2X/DAY (1 TABLET AS NEEDED)
     Route: 048
  14. VITAMIN D3 [Concomitant]
     Active Substance: CHOLECALCIFEROL
     Indication: MULTIPLE SCLEROSIS
     Dosage: 2000 IU, 1X/DAY
     Route: 048

REACTIONS (2)
  - Product dose omission [Unknown]
  - JC polyomavirus test positive [Unknown]
